FAERS Safety Report 7431960 (Version 3)
Quarter: 2013Q1

REPORT INFORMATION
  Report Type: Spontaneous
  Country: US (occurrence: US)
  Receive Date: 20100624
  Receipt Date: 20130109
  Transmission Date: 20140127
  Serious: Yes (Hospitalization, Other)
  Sender: FDA-Public Use
  Company Number: US-ELI_LILLY_AND_COMPANY-US201006005977

PATIENT
  Age: 55 Year
  Sex: Female
  Weight: 111.11 kg

DRUGS (20)
  1. BYETTA [Suspect]
     Dosage: 5 UG, BID
     Dates: start: 20051218, end: 20080401
  2. BYETTA [Suspect]
     Dosage: 10 UG, UNKNOWN
  3. NEXIUM [Concomitant]
     Indication: GASTROOESOPHAGEAL REFLUX DISEASE
     Dosage: UNK, PRN
     Dates: start: 2006, end: 2009
  4. GLUCOPHAGE [Concomitant]
     Indication: DIABETES MELLITUS
     Dosage: 1000 MG, BID
     Dates: start: 2005
  5. HUMALOG [Concomitant]
     Indication: DIABETES MELLITUS
     Dosage: 40 U, EACH MORNING
     Dates: start: 2005
  6. HUMALOG [Concomitant]
     Dosage: 30 U, EACH EVENING
  7. VYTORIN [Concomitant]
     Indication: HYPERCHOLESTEROLAEMIA
     Dosage: 1 DF, QD
     Dates: start: 200704, end: 200807
  8. NORVASC [Concomitant]
     Indication: HYPERTENSION
     Dosage: 10 MG, QD
     Dates: start: 2000
  9. VOLTAREN                           /00372301/ [Concomitant]
     Indication: PAIN
     Dosage: 75 MG, BID
     Dates: start: 2004
  10. NAFTIN [Concomitant]
     Indication: ECZEMA
     Dosage: UNK
     Dates: start: 20080328, end: 20090122
  11. CHROMAGEN [Concomitant]
     Indication: IRON DEFICIENCY ANAEMIA
     Dosage: 1 DF, QD
     Dates: start: 20070614, end: 20081230
  12. INDAPAMIDE [Concomitant]
     Indication: HYPERTENSION
     Dosage: UNK
     Dates: start: 20080407
  13. LOTENSIN [Concomitant]
     Dosage: 20 MG, QD
  14. NAPROXEN [Concomitant]
     Dosage: 500 MG, BID
  15. SYNTHROID [Concomitant]
     Dosage: 20 UG, QD
  16. BABY ASPIRIN [Concomitant]
     Dosage: 81 MG, QD
  17. SINGULAIR [Concomitant]
     Dosage: 10 MG, QD
  18. HYZAAR [Concomitant]
     Dosage: 1 DF, QD
  19. ADVAIR [Concomitant]
  20. ALBUTEROL SULFATE [Concomitant]
     Indication: WHEEZING

REACTIONS (2)
  - Pancreatitis acute [Unknown]
  - Off label use [Recovered/Resolved]
